FAERS Safety Report 6393216-9 (Version None)
Quarter: 2009Q4

REPORT INFORMATION
  Report Type: 
  Country: None (occurrence: None)
  Receive Date: 20091008
  Receipt Date: 20091003
  Transmission Date: 20100525
  Serious: Yes (Death)
  Sender: FDA-Public Use
  Company Number: DE-BRISTOL-MYERS SQUIBB COMPANY-14805170

PATIENT
  Sex: Female

DRUGS (1)
  1. SPRYCEL [Suspect]
     Indication: BLAST CELL PROLIFERATION
     Dosage: ROUTE:PEG (PERCUTANEOUS ENDOSCOPIC GASTROSTOMY)

REACTIONS (1)
  - PULMONARY HAEMORRHAGE [None]
